FAERS Safety Report 7248290-4 (Version None)
Quarter: 2011Q1

REPORT INFORMATION
  Report Type: 
  Country: None (occurrence: None)
  Receive Date: 20110127
  Receipt Date: 20110119
  Transmission Date: 20110831
  Serious: Yes (Other)
  Sender: FDA-Public Use
  Company Number: US-BAYER-2011-007857

PATIENT
  Sex: Female

DRUGS (1)
  1. YAZ [Suspect]
     Indication: PRODUCT USED FOR UNKNOWN INDICATION
     Dosage: UNK
     Dates: start: 20070301, end: 20070901

REACTIONS (3)
  - BILIARY DYSKINESIA [None]
  - SUBCLAVIAN VEIN THROMBOSIS [None]
  - AXILLARY VEIN THROMBOSIS [None]
